FAERS Safety Report 18158179 (Version 2)
Quarter: 2020Q4

REPORT INFORMATION
  Report Type: Report from Study
  Country: US (occurrence: US)
  Receive Date: 20200817
  Receipt Date: 20201006
  Transmission Date: 20210113
  Serious: Yes (Hospitalization, Other)
  Sender: FDA-Public Use
  Company Number: US-BRISTOL-MYERS SQUIBB COMPANY-BMS-2020-048198

PATIENT
  Age: 68 Year
  Sex: Male
  Weight: 95 kg

DRUGS (1)
  1. APIXABAN [Suspect]
     Active Substance: APIXABAN
     Indication: THROMBOSIS PROPHYLAXIS
     Dosage: 2.5 OR 5 MG, BID
     Route: 048
     Dates: start: 20200121

REACTIONS (3)
  - Encephalopathy [Unknown]
  - Haemorrhage intracranial [Unknown]
  - Seizure [Unknown]

NARRATIVE: CASE EVENT DATE: 20200606
